FAERS Safety Report 19460665 (Version 1)
Quarter: 2021Q2

REPORT INFORMATION
  Report Type: Spontaneous
  Country: DE (occurrence: DE)
  Receive Date: 20210625
  Receipt Date: 20210625
  Transmission Date: 20210717
  Serious: Yes (Hospitalization, Other)
  Sender: FDA-Public Use
  Company Number: DE-ALKEM LABORATORIES LIMITED-DE-ALKEM-2021-03813

PATIENT
  Age: 54 Year
  Sex: Female
  Weight: 80 kg

DRUGS (4)
  1. PREGABIN [Concomitant]
     Indication: PRODUCT USED FOR UNKNOWN INDICATION
     Dosage: 50 MILLIGRAM, BID
     Route: 048
     Dates: start: 202002
  2. CEFUROXIME AXETIL. [Suspect]
     Active Substance: CEFUROXIME AXETIL
     Indication: DENTAL CARE
     Dosage: 500 MILLIGRAM, BID
     Route: 048
     Dates: start: 20210517
  3. DOXEPIN?RATIOPHARM [Concomitant]
     Indication: PRODUCT USED FOR UNKNOWN INDICATION
     Dosage: 50 MILLIGRAM, QD
     Route: 048
     Dates: start: 202002
  4. ESCITALOPRAM HEUMANN [Concomitant]
     Indication: PRODUCT USED FOR UNKNOWN INDICATION
     Dosage: 20 MILLIGRAM, QD
     Route: 048
     Dates: start: 202002

REACTIONS (6)
  - Pruritus [Recovering/Resolving]
  - Urticaria [Recovering/Resolving]
  - Hypertension [Recovering/Resolving]
  - Panic reaction [Recovering/Resolving]
  - Paraesthesia [Recovering/Resolving]
  - Fear of death [Recovering/Resolving]

NARRATIVE: CASE EVENT DATE: 20210517
